FAERS Safety Report 7669544-3 (Version None)
Quarter: 2011Q3

REPORT INFORMATION
  Report Type: 
  Country: None (occurrence: None)
  Receive Date: 20110808
  Receipt Date: 20110727
  Transmission Date: 20111222
  Serious: Yes (Life-Threatening)
  Sender: FDA-Public Use
  Company Number: JP-AMGEN-JPNCT2011039671

PATIENT
  Age: 58 Year
  Sex: Male
  Weight: 48 kg

DRUGS (32)
  1. ROHYPNOL [Concomitant]
     Indication: INSOMNIA
     Route: 048
     Dates: end: 20100930
  2. POSCARL [Concomitant]
     Route: 048
     Dates: start: 20100319, end: 20100404
  3. CINACALCET HYDROCHLORIDE [Suspect]
     Dosage: 50 MG, QD
     Route: 048
     Dates: start: 20100524
  4. NESPO [Concomitant]
     Route: 040
     Dates: start: 20100430, end: 20100813
  5. CLONAZEPAM [Concomitant]
     Indication: ESSENTIAL TREMOR
     Route: 048
  6. CONIEL [Concomitant]
     Indication: HYPERTENSION
     Route: 048
     Dates: end: 20100930
  7. OXAROL [Concomitant]
     Indication: HYPERPARATHYROIDISM SECONDARY
     Dosage: 7.5 A?G, 3 TIMES/WK
     Route: 040
     Dates: start: 20091106
  8. EPOGIN [Concomitant]
     Indication: NEPHROGENIC ANAEMIA
     Dosage: UNK UNK, 3 TIMES/WK
     Route: 040
     Dates: start: 20091216
  9. LAC-B [Concomitant]
     Indication: DIARRHOEA
     Route: 048
     Dates: end: 20100930
  10. ANPLAG [Concomitant]
     Indication: ARTERIOSCLEROSIS OBLITERANS
     Route: 048
     Dates: end: 20100930
  11. AMLODIPINE [Concomitant]
     Indication: HYPERTENSION
     Route: 048
     Dates: end: 20100930
  12. CALBLOCK [Concomitant]
     Indication: HYPERTENSION
     Route: 048
     Dates: end: 20100930
  13. CANDESARTAN CILEXETIL [Concomitant]
     Indication: HYPERTENSION
     Route: 048
     Dates: end: 20100930
  14. WARFARIN SODIUM [Concomitant]
     Route: 048
     Dates: start: 20101016, end: 20101018
  15. WARFARIN SODIUM [Concomitant]
     Route: 048
     Dates: start: 20101019, end: 20101021
  16. POSCARL [Concomitant]
     Indication: HYPERKALAEMIA
     Route: 048
     Dates: start: 20091225, end: 20100102
  17. ROCALTROL [Concomitant]
     Indication: HYPERPARATHYROIDISM SECONDARY
     Route: 048
     Dates: start: 20100305, end: 20100930
  18. CALCIUM CARBONATE [Concomitant]
     Indication: HYPERPHOSPHATAEMIA
     Route: 048
     Dates: start: 20100315, end: 20100930
  19. REMITCH [Concomitant]
     Indication: PRURITUS
     Route: 048
     Dates: end: 20100930
  20. BLOSTAR M [Concomitant]
     Indication: GASTROOESOPHAGEAL REFLUX DISEASE
     Dosage: 20 MG, QD
     Route: 048
     Dates: start: 20091128
  21. WARFARIN SODIUM [Concomitant]
     Route: 048
     Dates: start: 20101022
  22. NESPO [Concomitant]
     Route: 040
     Dates: start: 20100814
  23. FESIN [Concomitant]
     Indication: IRON DEFICIENCY ANAEMIA
     Route: 040
     Dates: start: 20100108
  24. LANSOPRAZOLE [Concomitant]
     Indication: GASTROOESOPHAGEAL REFLUX DISEASE
     Route: 048
     Dates: end: 20091128
  25. WARFARIN SODIUM [Concomitant]
     Indication: ARTERIOSCLEROSIS OBLITERANS
     Dosage: UNCERTAINTY
     Route: 048
     Dates: end: 20100806
  26. WARFARIN SODIUM [Concomitant]
     Route: 048
     Dates: start: 20100807, end: 20100929
  27. CINACALCET HYDROCHLORIDE [Suspect]
     Indication: HYPERPARATHYROIDISM SECONDARY
     Dosage: 25 MG, QD
     Route: 048
     Dates: start: 20091107, end: 20100523
  28. NESPO [Concomitant]
     Indication: NEPHROGENIC ANAEMIA
     Route: 040
     Dates: start: 20091218, end: 20100429
  29. METHYCOBAL [Concomitant]
     Indication: NEURALGIA
     Route: 048
     Dates: end: 20100930
  30. DILTIAZEM HCL [Concomitant]
     Indication: HYPERTENSION
     Route: 048
     Dates: end: 20100930
  31. GASMOTIN [Concomitant]
     Indication: GASTRITIS
     Route: 048
     Dates: end: 20100930
  32. BUFFERIN [Concomitant]
     Route: 048
     Dates: end: 20100930

REACTIONS (6)
  - OSTEOMYELITIS [None]
  - PSEUDOMEMBRANOUS COLITIS [None]
  - HYPERKALAEMIA [None]
  - HYPERCALCAEMIA [None]
  - HYPOCALCAEMIA [None]
  - DERMAL CYST [None]
